FAERS Safety Report 7316900-9 (Version None)
Quarter: 2011Q1

REPORT INFORMATION
  Report Type: 
  Country: None (occurrence: None)
  Receive Date: 20110226
  Receipt Date: 20100901
  Transmission Date: 20110831
  Serious: No
  Sender: FDA-Public Use
  Company Number: US-ALLERGAN-1011308US

PATIENT
  Sex: Female

DRUGS (2)
  1. BOTOX COSMETIC [Suspect]
     Indication: SKIN WRINKLING
     Dosage: 75 UNITS, SINGLE
     Dates: start: 20091001, end: 20091001
  2. BOTOX COSMETIC [Suspect]
     Dosage: 50 UNITS, SINGLE
     Dates: start: 20091001, end: 20091001

REACTIONS (3)
  - SKIN DISORDER [None]
  - STRABISMUS [None]
  - HAIR DISORDER [None]
